FAERS Safety Report 10640690 (Version 1)
Quarter: 2014Q4

REPORT INFORMATION
  Report Type: Spontaneous
  Country: US (occurrence: None)
  Receive Date: 20141205
  Receipt Date: 20141205
  Transmission Date: 20150529
  Serious: Yes (Other)
  Sender: FDA-Public Use
  Company Number: 001837092A

PATIENT
  Age: 57 Year
  Sex: Female

DRUGS (8)
  1. SYNTHETIC MORPHINE [Concomitant]
  2. MEANINGFUL BEAUTY CINDY CRAWFORD SKIN BRIGHTENING DECOLLETE AND NECK TREATMENT SPF 15 [Suspect]
     Active Substance: AVOBENZONE\OCTINOXATE\OCTISALATE\OXYBENZONE
     Dosage: DERMAL
     Route: 023
     Dates: start: 20131210
  3. MUSCLE RELAXANT [Concomitant]
     Active Substance: UNSPECIFIED INGREDIENT
  4. BLOOD PRESSURE MEDICATION [Concomitant]
     Active Substance: UNSPECIFIED INGREDIENT
  5. EPIPEN [Concomitant]
     Active Substance: EPINEPHRINE
  6. THYROID MEDICATION [Concomitant]
     Active Substance: UNSPECIFIED INGREDIENT
  7. MEANINGFUL BEAUTY CINDY CRAWFORD ANTIOXIDANT SPF 20 UVA/UVB [Suspect]
     Active Substance: AVOBENZONE\OCTINOXATE\OCTISALATE\OXYBENZONE
     Dosage: DERMAL
     Route: 023
     Dates: start: 20131210
  8. REFLUX MEDICATION [Concomitant]

REACTIONS (1)
  - Urticaria [None]

NARRATIVE: CASE EVENT DATE: 20131211
